FAERS Safety Report 5917475-9 (Version None)
Quarter: 2008Q4

REPORT INFORMATION
  Report Type: 
  Country: None (occurrence: None)
  Receive Date: 20081009
  Receipt Date: 20081009
  Transmission Date: 20090506
  Serious: Yes (Hospitalization, Other)
  Sender: FDA-Public Use
  Company Number: None

PATIENT
  Sex: Female
  Weight: 76 kg

DRUGS (2)
  1. CALCITONIN-SALMON [Suspect]
     Indication: HYPERCALCAEMIA
     Dosage: 280 UNITS X1 SQ
     Route: 058
     Dates: start: 20080716, end: 20080716
  2. CALCITONIN-SALMON [Suspect]
     Indication: OVARIAN CANCER
     Dosage: 280 UNITS X1 SQ
     Route: 058
     Dates: start: 20080716, end: 20080716

REACTIONS (2)
  - ANAPHYLACTIC REACTION [None]
  - DRUG HYPERSENSITIVITY [None]
